FAERS Safety Report 7489258-2 (Version None)
Quarter: 2011Q2

REPORT INFORMATION
  Report Type: 
  Country: None (occurrence: None)
  Receive Date: 20110518
  Receipt Date: 20110513
  Transmission Date: 20111010
  Serious: Yes (Hospitalization)
  Sender: FDA-Public Use
  Company Number: FR-PFIZER INC-2011078791

PATIENT
  Age: 39 Year
  Sex: Female

DRUGS (9)
  1. XANAX [Suspect]
     Dosage: 0.25 MG, 1X/DAY
     Route: 048
  2. PROZAC [Concomitant]
     Dosage: 20 MG, UNK
  3. IRBESARTAN + HYDROCHLOROTHIAZIDE [Concomitant]
     Dosage: 150 MG/12.5 MG
  4. TRAMADOL HCL [Suspect]
     Indication: PAIN
     Dosage: UNK
     Route: 048
     Dates: start: 20110204, end: 20110216
  5. UVEDOSE [Concomitant]
  6. CIMETIDINE [Concomitant]
  7. LASIX [Concomitant]
  8. OXYBUTYNIN [Concomitant]
  9. ZANIDIP [Concomitant]
     Dosage: 20 MG, UNK

REACTIONS (4)
  - HALLUCINATION, AUDITORY [None]
  - ABNORMAL BEHAVIOUR [None]
  - WITHDRAWAL SYNDROME [None]
  - HALLUCINATION, VISUAL [None]
